FAERS Safety Report 11665105 (Version 1)
Quarter: 2015Q4

REPORT INFORMATION
  Report Type: Spontaneous
  Country: US (occurrence: US)
  Receive Date: 20151027
  Receipt Date: 20151027
  Transmission Date: 20160304
  Serious: No
  Sender: FDA-Public Use
  Company Number: US-ELI_LILLY_AND_COMPANY-US200912003129

PATIENT
  Sex: Female

DRUGS (1)
  1. FORTEO [Suspect]
     Active Substance: TERIPARATIDE
     Indication: OSTEOPOROSIS
     Dosage: 20 UG, DAILY (1/D)
     Dates: start: 20091104, end: 200912

REACTIONS (16)
  - Abdominal pain upper [Unknown]
  - Pruritus generalised [Unknown]
  - Flatulence [Unknown]
  - Urticaria [Unknown]
  - Back pain [Unknown]
  - Drug hypersensitivity [Unknown]
  - Asthenia [Unknown]
  - Abnormal sensation in eye [Unknown]
  - Headache [Unknown]
  - Diarrhoea [Unknown]
  - Amnesia [Unknown]
  - Feeling abnormal [Unknown]
  - Rash [Unknown]
  - Abdominal distension [Unknown]
  - Pain [Unknown]
  - Balance disorder [Unknown]

NARRATIVE: CASE EVENT DATE: 2009
